FAERS Safety Report 21624449 (Version 1)
Quarter: 2022Q4

REPORT INFORMATION
  Report Type: Spontaneous
  Country: US (occurrence: US)
  Receive Date: 20221121
  Receipt Date: 20221121
  Transmission Date: 20230113
  Serious: Yes (Other)
  Sender: FDA-Public Use
  Company Number: US-BRACCO-2021US04529

PATIENT
  Age: 68 Year
  Sex: Female

DRUGS (12)
  1. LUMASON [Suspect]
     Active Substance: SULFUR HEXAFLUORIDE
     Indication: Echocardiogram
     Dosage: 1.5 ML, SINGLE
     Route: 042
     Dates: start: 20211021, end: 20211021
  2. LUMASON [Suspect]
     Active Substance: SULFUR HEXAFLUORIDE
     Indication: Echocardiogram
     Dosage: 1.5 ML, SINGLE
     Route: 042
     Dates: start: 20211021, end: 20211021
  3. LUMASON [Suspect]
     Active Substance: SULFUR HEXAFLUORIDE
     Indication: Echocardiogram
     Dosage: 1.5 ML, SINGLE
     Route: 042
     Dates: start: 20211021, end: 20211021
  4. ACYCLOVIR [Concomitant]
     Active Substance: ACYCLOVIR
  5. ELIQUIS [Concomitant]
     Active Substance: APIXABAN
  6. CIPROFLOXACIN [Concomitant]
     Active Substance: CIPROFLOXACIN
  7. VITAMIN D3 [Concomitant]
     Active Substance: CHOLECALCIFEROL
  8. DILTIAZEM [Concomitant]
     Active Substance: DILTIAZEM
  9. ALLOPURINOL [Concomitant]
     Active Substance: ALLOPURINOL
  10. DIFLUCAN [Concomitant]
     Active Substance: FLUCONAZOLE
  11. LASIX [Concomitant]
     Active Substance: FUROSEMIDE
  12. METOPROLOL TARTRATE [Concomitant]
     Active Substance: METOPROLOL TARTRATE

REACTIONS (7)
  - Oxygen saturation decreased [Recovered/Resolved]
  - Electrocardiogram ST segment depression [Recovered/Resolved]
  - Dyspnoea [Recovered/Resolved]
  - Nausea [Recovered/Resolved]
  - Chest pain [Recovered/Resolved]
  - Sinus tachycardia [Recovered/Resolved]
  - Cardiac disorder [Recovered/Resolved]

NARRATIVE: CASE EVENT DATE: 20211021
